FAERS Safety Report 10074728 (Version 4)
Quarter: 2014Q2

REPORT INFORMATION
  Report Type: Spontaneous
  Country: US (occurrence: US)
  Receive Date: 20140414
  Receipt Date: 20140527
  Transmission Date: 20141212
  Serious: Yes (Other)
  Sender: FDA-Public Use
  Company Number: US-PFIZER INC-2014100043

PATIENT
  Age: 81 Year
  Sex: Female
  Weight: 61.22 kg

DRUGS (2)
  1. XALATAN [Suspect]
     Indication: DIPLOPIA
     Dosage: 1 DROP IN EACH EYE, DAILY
     Route: 047
     Dates: start: 1997
  2. XALATAN [Suspect]
     Indication: EYE DISORDER

REACTIONS (3)
  - Retinal detachment [Unknown]
  - Blindness unilateral [Unknown]
  - Off label use [Unknown]
